FAERS Safety Report 22538837 (Version 1)
Quarter: 2023Q2

REPORT INFORMATION
  Report Type: Report from Study
  Country: EG (occurrence: EG)
  Receive Date: 20230609
  Receipt Date: 20230609
  Transmission Date: 20230721
  Serious: Yes (Other)
  Sender: FDA-Public Use
  Company Number: EG-002147023-NVSC2023EG128085

PATIENT
  Age: 75 Year
  Sex: Female

DRUGS (4)
  1. LUCENTIS [Suspect]
     Active Substance: RANIBIZUMAB
     Indication: Age-related macular degeneration
     Dosage: UNK (IN BOTH EYES)
     Route: 031
     Dates: start: 2019, end: 2021
  2. LUCENTIS [Suspect]
     Active Substance: RANIBIZUMAB
     Indication: Congenital eye disorder
     Dosage: UNK (IN LEFT EYE)
     Route: 031
     Dates: start: 202301, end: 20230515
  3. BROLUCIZUMAB [Suspect]
     Active Substance: BROLUCIZUMAB
     Indication: Age-related macular degeneration
     Dosage: UNK (IN RIGHT EYE)
     Route: 031
     Dates: start: 202302, end: 20230522
  4. BROLUCIZUMAB [Suspect]
     Active Substance: BROLUCIZUMAB
     Indication: Congenital eye disorder

REACTIONS (7)
  - Macular oedema [Not Recovered/Not Resolved]
  - Vision blurred [Not Recovered/Not Resolved]
  - COVID-19 [Recovered/Resolved]
  - Hypertension [Not Recovered/Not Resolved]
  - Atrophy [Not Recovered/Not Resolved]
  - Intraocular pressure increased [Not Recovered/Not Resolved]
  - Drug ineffective [Not Recovered/Not Resolved]

NARRATIVE: CASE EVENT DATE: 20230501
